FAERS Safety Report 9065120 (Version 1)
Quarter: 2013Q1

REPORT INFORMATION
  Report Type: Spontaneous
  Country: US (occurrence: US)
  Receive Date: 20130214
  Receipt Date: 20130214
  Transmission Date: 20140127
  Serious: No
  Sender: FDA-Public Use
  Company Number: US-PFIZER INC-2013059061

PATIENT
  Age: 64 Year
  Sex: Female
  Weight: 113 kg

DRUGS (4)
  1. CHANTIX [Suspect]
     Dosage: 0.5 MG, 1X/DAY
     Dates: start: 20130209, end: 20130212
  2. LANTUS [Concomitant]
     Indication: DIABETES MELLITUS
     Dosage: 52 IU, 2X/DAY
  3. NOVOLOG [Concomitant]
     Indication: DIABETES MELLITUS
     Dosage: 20 IU, 2X/DAY
  4. SYNTHROID [Concomitant]
     Indication: HYPOTHYROIDISM
     Dosage: 1 MCG 1X/DAY

REACTIONS (2)
  - Somnolence [Not Recovered/Not Resolved]
  - Feeling cold [Not Recovered/Not Resolved]
